FAERS Safety Report 9225800 (Version 1)
Quarter: 2013Q2

REPORT INFORMATION
  Report Type: Spontaneous
  Country: US (occurrence: None)
  Receive Date: 20130410
  Receipt Date: 20130410
  Transmission Date: 20140414
  Serious: Yes (Hospitalization)
  Sender: FDA-Public Use
  Company Number: None

PATIENT
  Age: 59 Year
  Sex: Male
  Weight: 81 kg

DRUGS (1)
  1. CETUXIMAB [Suspect]
     Indication: NEOPLASM
     Route: 042
     Dates: start: 20130401, end: 20130401

REACTIONS (2)
  - Anaphylactic reaction [None]
  - Infusion related reaction [None]
